FAERS Safety Report 5956881-3 (Version None)
Quarter: 2008Q4

REPORT INFORMATION
  Report Type: 
  Country: None (occurrence: None)
  Receive Date: 20081118
  Receipt Date: 20081106
  Transmission Date: 20090506
  Serious: Yes (Other)
  Sender: FDA-Public Use
  Company Number: BR-PFIZER INC-2006154017

PATIENT
  Sex: Female
  Weight: 65 kg

DRUGS (3)
  1. DOSTINEX [Suspect]
     Indication: HYPERPROLACTINAEMIA
     Route: 048
     Dates: start: 20070101
  2. DOSTINEX [Suspect]
     Indication: PITUITARY TUMOUR BENIGN
  3. PARLODEL [Concomitant]
     Route: 048
     Dates: start: 19990101, end: 20061101

REACTIONS (9)
  - BRADYPHRENIA [None]
  - CONFUSIONAL STATE [None]
  - INFLUENZA [None]
  - MUSCLE SPASMS [None]
  - PITUITARY TUMOUR BENIGN [None]
  - RHINITIS [None]
  - SINUSITIS [None]
  - SOMNOLENCE [None]
  - TENDONITIS [None]
